FAERS Safety Report 19419472 (Version 1)
Quarter: 2021Q2

REPORT INFORMATION
  Report Type: Spontaneous
  Country: US (occurrence: US)
  Receive Date: 20210615
  Receipt Date: 20210615
  Transmission Date: 20210717
  Serious: Yes (Death, Other)
  Sender: FDA-Public Use
  Company Number: US-SLATE RUN PHARMACEUTICALS-21US000529

PATIENT

DRUGS (20)
  1. ERAVACYCLINE. [Concomitant]
     Active Substance: ERAVACYCLINE
     Indication: PSEUDOMONAS INFECTION
  2. ERAVACYCLINE. [Concomitant]
     Active Substance: ERAVACYCLINE
     Indication: FUNGAL INFECTION
  3. VORICONAZOLE. [Suspect]
     Active Substance: VORICONAZOLE
     Indication: FUNGAL INFECTION
     Dosage: UNK
  4. TOCILIZUMAB. [Suspect]
     Active Substance: TOCILIZUMAB
     Indication: COVID-19
     Dosage: UNK
  5. TOBRAMYCIN. [Concomitant]
     Active Substance: TOBRAMYCIN
     Indication: PSEUDOMONAS INFECTION
     Dosage: UNK
     Route: 055
  6. AMPHOTERICIN B LIPID COMPLEX [Concomitant]
     Active Substance: AMPHOTERICIN B
     Indication: STENOTROPHOMONAS INFECTION
     Dosage: UNK
  7. LEVOFLOXACIN. [Suspect]
     Active Substance: LEVOFLOXACIN
     Indication: PSEUDOMONAS INFECTION
  8. CEFEPIME [Concomitant]
     Active Substance: CEFEPIME HYDROCHLORIDE
     Indication: STENOTROPHOMONAS INFECTION
     Dosage: UNK
  9. TOBRAMYCIN. [Concomitant]
     Active Substance: TOBRAMYCIN
     Indication: STENOTROPHOMONAS INFECTION
     Dosage: UNK
     Route: 055
  10. TOBRAMYCIN. [Concomitant]
     Active Substance: TOBRAMYCIN
     Indication: FUNGAL INFECTION
  11. ERAVACYCLINE. [Concomitant]
     Active Substance: ERAVACYCLINE
     Indication: STENOTROPHOMONAS INFECTION
     Dosage: UNK
  12. GANCICLOVIR USP [Suspect]
     Active Substance: GANCICLOVIR
     Dosage: 6 MILLIGRAM PER KILOGRAM, Q 12 HR
  13. AMPHOTERICIN B LIPID COMPLEX [Concomitant]
     Active Substance: AMPHOTERICIN B
     Indication: FUNGAL INFECTION
  14. CEFEPIME [Concomitant]
     Active Substance: CEFEPIME HYDROCHLORIDE
     Indication: PSEUDOMONAS INFECTION
     Dosage: UNK
  15. GANCICLOVIR USP [Suspect]
     Active Substance: GANCICLOVIR
     Indication: CYTOMEGALOVIRUS INFECTION
     Dosage: 4.5 MILLIGRAM PER KILOGRAM, Q 12 HR
  16. LEVOFLOXACIN. [Suspect]
     Active Substance: LEVOFLOXACIN
     Indication: FUNGAL INFECTION
  17. CEFEPIME [Concomitant]
     Active Substance: CEFEPIME HYDROCHLORIDE
     Indication: FUNGAL INFECTION
  18. ISAVUCONAZOLE [Concomitant]
     Active Substance: ISAVUCONAZOLE
     Indication: ASPERGILLUS INFECTION
     Dosage: UNK
  19. LEVOFLOXACIN. [Suspect]
     Active Substance: LEVOFLOXACIN
     Indication: STENOTROPHOMONAS INFECTION
     Dosage: UNK
  20. AMPHOTERICIN B LIPID COMPLEX [Concomitant]
     Active Substance: AMPHOTERICIN B
     Indication: PSEUDOMONAS INFECTION

REACTIONS (5)
  - Electrocardiogram QT prolonged [Unknown]
  - Cytomegalovirus viraemia [Recovering/Resolving]
  - Thrombocytopenia [Recovering/Resolving]
  - Death [Fatal]
  - Prescribed overdose [Unknown]
